FAERS Safety Report 23334431 (Version 1)
Quarter: 2023Q4

REPORT INFORMATION
  Report Type: Report from Study
  Country: CZ (occurrence: CZ)
  Receive Date: 20231224
  Receipt Date: 20231224
  Transmission Date: 20240109
  Serious: Yes (Other)
  Sender: FDA-Public Use
  Company Number: 2023CZ0403219

PATIENT

DRUGS (3)
  1. HULIO [Suspect]
     Active Substance: ADALIMUMAB-FKJP
     Indication: Ankylosing spondylitis
     Dosage: 40 MG, BIWEEKLY
     Route: 065
     Dates: start: 20190528, end: 20231010
  2. HULIO [Suspect]
     Active Substance: ADALIMUMAB-FKJP
  3. HULIO [Suspect]
     Active Substance: ADALIMUMAB-FKJP

REACTIONS (1)
  - Glossitis [Recovering/Resolving]

NARRATIVE: CASE EVENT DATE: 20230904
